FAERS Safety Report 22099688 (Version 1)
Quarter: 2023Q1

REPORT INFORMATION
  Report Type: Spontaneous
  Country: US (occurrence: US)
  Receive Date: 20230315
  Receipt Date: 20230315
  Transmission Date: 20230418
  Serious: Yes (Other)
  Sender: FDA-Public Use
  Company Number: US-PFIZER INC-202300108422

PATIENT
  Age: 42 Year
  Sex: Female

DRUGS (1)
  1. IBRANCE [Suspect]
     Active Substance: PALBOCICLIB
     Dosage: 125 MG, CYCLIC, (1 CAPSULE EVERY DAY FOR 21 DAYS, THEN 7 DAYS OFF)
     Dates: start: 20230106, end: 20230228

REACTIONS (1)
  - Campylobacter infection [Not Recovered/Not Resolved]
